FAERS Safety Report 4889579-3 (Version None)
Quarter: 2006Q1

REPORT INFORMATION
  Report Type: 
  Country: None (occurrence: None)
  Receive Date: 20060124
  Receipt Date: 20060110
  Transmission Date: 20060701
  Serious: Yes (Death)
  Sender: FDA-Public Use
  Company Number: GB-JNJFOC-20060104438

PATIENT
  Age: 76 Year
  Sex: Female
  Weight: 63.64 kg

DRUGS (6)
  1. TRAMADOL HCL [Suspect]
     Indication: SPINAL COMPRESSION FRACTURE
     Route: 048
     Dates: start: 20020401, end: 20041201
  2. TRAMADOL HCL [Suspect]
     Indication: OSTEOPOROSIS
     Dosage: 50-100MG AS NECESSARY
     Route: 048
     Dates: start: 20020401, end: 20041201
  3. BENDROFLUMETHIAZIDE [Concomitant]
     Route: 048
  4. LANSOPRAZOLE [Concomitant]
     Route: 048
  5. RALOXIFENE [Concomitant]
     Route: 048
  6. TEGRETOL [Concomitant]
     Route: 048

REACTIONS (1)
  - SUDDEN UNEXPLAINED DEATH IN EPILEPSY [None]
